FAERS Safety Report 12523192 (Version 1)
Quarter: 2016Q3

REPORT INFORMATION
  Report Type: Report from Study
  Country: CA (occurrence: CA)
  Receive Date: 20160702
  Receipt Date: 20160702
  Transmission Date: 20161109
  Serious: Yes (Other)
  Sender: FDA-Public Use
  Company Number: CA-AMGEN-CANSL2016080405

PATIENT
  Age: 74 Year
  Sex: Male

DRUGS (8)
  1. RAMIPRIL. [Concomitant]
     Active Substance: RAMIPRIL
     Dosage: UNK
  2. EZETROL [Concomitant]
     Active Substance: EZETIMIBE
     Dosage: UNK
  3. ENBREL [Suspect]
     Active Substance: ETANERCEPT
     Indication: RHEUMATOID ARTHRITIS
     Dosage: 50 MG, UNK
     Route: 065
     Dates: start: 20040329
  4. METOPROLOL. [Concomitant]
     Active Substance: METOPROLOL
     Dosage: UNK
  5. PREDNISONE. [Concomitant]
     Active Substance: PREDNISONE
     Dosage: UNK
  6. ATORVASTATIN [Concomitant]
     Active Substance: ATORVASTATIN
  7. PANTOLOC [Concomitant]
     Active Substance: PANTOPRAZOLE SODIUM
     Dosage: UNK
  8. XARELTO [Concomitant]
     Active Substance: RIVAROXABAN
     Dosage: UNK

REACTIONS (13)
  - Visual field defect [Unknown]
  - Rash [Unknown]
  - Infection [Recovered/Resolved]
  - Skin infection [Unknown]
  - Contusion [Unknown]
  - Foot operation [Unknown]
  - Retinal artery thrombosis [Unknown]
  - Rash macular [Unknown]
  - Retinal detachment [Unknown]
  - Atrial fibrillation [Unknown]
  - Eye disorder [Unknown]
  - Retinal injury [Unknown]
  - Blindness [Unknown]

NARRATIVE: CASE EVENT DATE: 2009
